FAERS Safety Report 8854924 (Version 3)
Quarter: 2013Q2

REPORT INFORMATION
  Report Type: Report from Study
  Country: CA (occurrence: CA)
  Receive Date: 20121023
  Receipt Date: 20130415
  Transmission Date: 20140414
  Serious: Yes (Hospitalization)
  Sender: FDA-Public Use
  Company Number: CA-JNJFOC-20121007244

PATIENT
  Age: 57 Year
  Sex: Female
  Weight: 62.7 kg

DRUGS (1)
  1. REMICADE [Suspect]
     Indication: CROHN^S DISEASE
     Route: 042
     Dates: start: 2010

REACTIONS (1)
  - Gastrointestinal stoma complication [Recovering/Resolving]
